FAERS Safety Report 9299316 (Version 1)
Quarter: 2013Q2

REPORT INFORMATION
  Report Type: Spontaneous
  Country: ES (occurrence: ES)
  Receive Date: 20130520
  Receipt Date: 20130520
  Transmission Date: 20140414
  Serious: Yes (Death, Hospitalization)
  Sender: FDA-Public Use
  Company Number: PHHY2013ES049019

PATIENT
  Age: 79 Year
  Sex: Female

DRUGS (4)
  1. SINTROM [Suspect]
     Indication: ATRIAL FIBRILLATION
     Dates: end: 20130128
  2. DIGOXIN [Suspect]
     Indication: ATRIAL FIBRILLATION
     Dosage: 0.75 MG, UNK
     Route: 048
  3. ENOXAPARIN [Suspect]
     Indication: ATRIAL FIBRILLATION
     Dosage: 40 MG, DAILY
     Route: 058
     Dates: start: 20130118, end: 20130128
  4. AUGMENTIN [Suspect]
     Indication: BRONCHITIS
     Dosage: 3 G, TID
     Route: 048
     Dates: start: 20130118, end: 20130127

REACTIONS (1)
  - Abdominal wall haematoma [Fatal]
